FAERS Safety Report 9848737 (Version 1)
Quarter: 2014Q1

REPORT INFORMATION
  Report Type: Spontaneous
  Country: US (occurrence: None)
  Receive Date: 20140124
  Receipt Date: 20140124
  Transmission Date: 20141002
  Serious: Yes (Hospitalization)
  Sender: FDA-Public Use
  Company Number: None

PATIENT
  Age: 85 Year
  Sex: Male
  Weight: 75.6 kg

DRUGS (1)
  1. DIGOXIN [Suspect]
     Indication: ATRIAL FIBRILLATION
     Route: 048
     Dates: start: 20131101, end: 20131112

REACTIONS (1)
  - Bradycardia [None]
